FAERS Safety Report 10310615 (Version 1)
Quarter: 2014Q3

REPORT INFORMATION
  Report Type: Spontaneous
  Country: GB (occurrence: None)
  Receive Date: 20140714
  Receipt Date: 20140714
  Transmission Date: 20150326
  Serious: Yes (Disabling)
  Sender: FDA-Public Use
  Company Number: AUR-APL-2014-07328

PATIENT
  Age: 76 Year
  Sex: Male
  Weight: 90 kg

DRUGS (9)
  1. ASPIRIN (ACETYLSALICYLIC ACID) [Concomitant]
     Active Substance: ASPIRIN
  2. DILTIAZEM (DILTIAZEM) [Concomitant]
  3. ENALAPRIL (ENALAPRIL) [Concomitant]
     Active Substance: ENALAPRIL
  4. NICORANDIL (NICORANDIL) [Concomitant]
     Active Substance: NICORANDIL
  5. ATROVASTATIN (ATORVASTATIN) [Concomitant]
  6. ISOSORBIDE (ISOSORBIDE) [Concomitant]
     Active Substance: ISOSORBIDE
  7. LANSOPRAZOL (LANSOPRAZOLE) [Concomitant]
  8. METFORMIN [Suspect]
     Active Substance: METFORMIN HYDROCHLORIDE
     Indication: PRODUCT USED FOR UNKNOWN INDICATION
     Route: 048
     Dates: start: 20140513, end: 20140618
  9. BISOPROLOL (BISOPROLOL) [Concomitant]
     Active Substance: BISOPROLOL

REACTIONS (4)
  - Cerebellar ataxia [None]
  - Gait disturbance [None]
  - Coordination abnormal [None]
  - Essential tremor [None]

NARRATIVE: CASE EVENT DATE: 20140520
